FAERS Safety Report 23564348 (Version 1)
Quarter: 2024Q1

REPORT INFORMATION
  Report Type: Spontaneous
  Country: US (occurrence: US)
  Receive Date: 20240226
  Receipt Date: 20240226
  Transmission Date: 20240410
  Serious: No
  Sender: FDA-Public Use
  Company Number: US-TAKEDA-2024TUS016182

PATIENT
  Weight: 21 kg

DRUGS (4)
  1. GAMMAGARD LIQUID [Suspect]
     Active Substance: HUMAN IMMUNOGLOBULIN G
     Indication: Immunodeficiency
     Dosage: 125 MILLIGRAM, QID
     Route: 048
     Dates: start: 2021
  2. PROGRAF [Concomitant]
     Active Substance: TACROLIMUS
  3. VITAMIN D [Concomitant]
     Active Substance: VITAMIN D NOS
  4. ENALAPRIL [Concomitant]
     Active Substance: ENALAPRIL

REACTIONS (4)
  - Wrong technique in product usage process [Unknown]
  - Incorrect dose administered [Unknown]
  - Incorrect route of product administration [Unknown]
  - No adverse event [Unknown]
